FAERS Safety Report 25623760 (Version 1)
Quarter: 2025Q3

REPORT INFORMATION
  Report Type: Spontaneous
  Country: DZ (occurrence: DZ)
  Receive Date: 20250730
  Receipt Date: 20250730
  Transmission Date: 20251021
  Serious: Yes (Death)
  Sender: PFIZER
  Company Number: DZ-PFIZER INC-PV202500091956

PATIENT
  Sex: Female

DRUGS (1)
  1. CRIZOTINIB [Suspect]
     Active Substance: CRIZOTINIB
     Indication: Non-small cell lung cancer

REACTIONS (2)
  - Viral infection [Fatal]
  - Pleural effusion [Unknown]
